FAERS Safety Report 5111190-X (Version None)
Quarter: 2006Q3

REPORT INFORMATION
  Report Type: 
  Country: None (occurrence: None)
  Receive Date: 20060731
  Receipt Date: 20060611
  Transmission Date: 20061208
  Serious: No
  Sender: FDA-Public Use
  Company Number: 2006PV015398

PATIENT
  Age: 79 Year
  Sex: Male
  Weight: 81.6475 kg

DRUGS (6)
  1. BYETTA [Suspect]
     Indication: DIZZINESS
     Dosage: 5 MCG BID SC
     Route: 058
     Dates: start: 20060609
  2. BYETTA [Suspect]
     Indication: HEADACHE
     Dosage: 5 MCG BID SC
     Route: 058
     Dates: start: 20060609
  3. BYETTA [Suspect]
     Indication: HYPOTENSION
     Dosage: 5 MCG BID SC
     Route: 058
     Dates: start: 20060609
  4. PREDNISONE TAB [Concomitant]
  5. VIDOCIN [Concomitant]
  6. PAIN MEDICINE [Concomitant]

REACTIONS (2)
  - FLUSHING [None]
  - HOT FLUSH [None]
